FAERS Safety Report 4894808-6 (Version None)
Quarter: 2006Q1

REPORT INFORMATION
  Report Type: 
  Country: None (occurrence: None)
  Receive Date: 20060130
  Receipt Date: 20060120
  Transmission Date: 20060701
  Serious: Yes (Hospitalization)
  Sender: FDA-Public Use
  Company Number: DE-NOVOPROD-250186

PATIENT
  Age: 75 Year
  Sex: Male

DRUGS (1)
  1. ACTRAPHANE 30 NOVOLET [Suspect]
     Indication: DIABETES MELLITUS

REACTIONS (2)
  - LOSS OF CONSCIOUSNESS [None]
  - MENTAL DISORDER [None]
